FAERS Safety Report 5738682-4 (Version None)
Quarter: 2008Q2

REPORT INFORMATION
  Report Type: 
  Country: None (occurrence: None)
  Receive Date: 20080514
  Receipt Date: 20080514
  Transmission Date: 20081010
  Serious: Yes (Other)
  Sender: FDA-Public Use
  Company Number: None

PATIENT
  Age: 46 Year
  Sex: Female
  Weight: 84.369 kg

DRUGS (1)
  1. CHANTIX [Suspect]
     Indication: SMOKER
     Dosage: 1 MG 2X DAILY

REACTIONS (6)
  - AMNESIA [None]
  - DIZZINESS [None]
  - HYPOHIDROSIS [None]
  - PAIN [None]
  - SYNCOPE [None]
  - URINE OUTPUT DECREASED [None]
